FAERS Safety Report 5746778-6 (Version None)
Quarter: 2008Q2

REPORT INFORMATION
  Report Type: 
  Country: None (occurrence: None)
  Receive Date: 20080522
  Receipt Date: 20080516
  Transmission Date: 20081010
  Serious: Yes (Other)
  Sender: FDA-Public Use
  Company Number: US-ELI_LILLY_AND_COMPANY-US200805003305

PATIENT
  Sex: Male

DRUGS (3)
  1. HUMALOG [Suspect]
     Dosage: 50 U, 3/D BEFORE MEALS
  2. LANTUS [Concomitant]
     Dosage: 37 U, EACH MORNING
  3. LANTUS [Concomitant]
     Dosage: 37 U, EACH EVENING

REACTIONS (3)
  - CARDIAC FAILURE CHRONIC [None]
  - CEREBROVASCULAR ACCIDENT [None]
  - CORONARY ARTERY BYPASS [None]
